FAERS Safety Report 14134805 (Version 1)
Quarter: 2017Q4

REPORT INFORMATION
  Report Type: Spontaneous
  Country: US (occurrence: US)
  Receive Date: 20171027
  Receipt Date: 20171027
  Transmission Date: 20180321
  Serious: No
  Sender: FDA-Public Use
  Company Number: US-LEO PHARMA-305148

PATIENT
  Sex: Female

DRUGS (1)
  1. PICATO [Suspect]
     Active Substance: INGENOL MEBUTATE
     Indication: ACTINIC KERATOSIS
     Dosage: APPLIED ON DAY 1, SKIPPED A DAY, AND THEN APPLIED NEXT 2 DOSES ON DAY 3 AND 4.
     Route: 061
     Dates: start: 20171021, end: 20171024

REACTIONS (7)
  - Application site pain [Unknown]
  - Application site discharge [Unknown]
  - Application site pain [Recovered/Resolved]
  - Application site vesicles [Unknown]
  - Application site erythema [Unknown]
  - Inappropriate schedule of drug administration [Unknown]
  - Application site scab [Unknown]
